FAERS Safety Report 17620998 (Version 1)
Quarter: 2020Q2

REPORT INFORMATION
  Report Type: Spontaneous
  Country: CA (occurrence: CA)
  Receive Date: 20200403
  Receipt Date: 20200403
  Transmission Date: 20200713
  Serious: Yes (Other)
  Sender: FDA-Public Use
  Company Number: CA-PFIZER INC-2020137094

PATIENT
  Age: 65 Year
  Sex: Female

DRUGS (1)
  1. OXALIPLATIN. [Suspect]
     Active Substance: OXALIPLATIN
     Indication: COLON CANCER
     Dosage: 1 EVERY 2 WEEKS
     Route: 042

REACTIONS (9)
  - Platelet count decreased [Recovering/Resolving]
  - Pharyngeal swelling [Recovering/Resolving]
  - Drug hypersensitivity [Recovering/Resolving]
  - Swollen tongue [Recovering/Resolving]
  - Hypoaesthesia oral [Recovering/Resolving]
  - Angioedema [Recovering/Resolving]
  - Dysphonia [Recovering/Resolving]
  - Epistaxis [Recovering/Resolving]
  - Lip swelling [Recovering/Resolving]
